FAERS Safety Report 15179341 (Version 1)
Quarter: 2018Q3

REPORT INFORMATION
  Report Type: Spontaneous
  Country: US (occurrence: US)
  Receive Date: 20180723
  Receipt Date: 20180723
  Transmission Date: 20181010
  Serious: Yes (Other)
  Sender: FDA-Public Use
  Company Number: US-JNJFOC-20180717365

PATIENT
  Age: 42 Year
  Sex: Female
  Weight: 45.36 kg

DRUGS (1)
  1. LISTERINE TOTAL CARE STAIN REMOVER ANTI CAVITY FRESHMINT [Suspect]
     Active Substance: SODIUM FLUORIDE
     Indication: DENTAL DISORDER PROPHYLAXIS
     Dosage: 1/4 OF A CAPFUL THREE TO FOUR TIMES A WEEK
     Route: 048
     Dates: start: 2018, end: 20180707

REACTIONS (3)
  - Inappropriate schedule of drug administration [Unknown]
  - Chemical burn of gastrointestinal tract [Recovering/Resolving]
  - Incorrect dose administered [Unknown]

NARRATIVE: CASE EVENT DATE: 2018
